FAERS Safety Report 9307917 (Version 2)
Quarter: 2013Q3

REPORT INFORMATION
  Report Type: Spontaneous
  Country: US (occurrence: US)
  Receive Date: 20130524
  Receipt Date: 20130724
  Transmission Date: 20140515
  Serious: No
  Sender: FDA-Public Use
  Company Number: US-009507513-1305USA013469

PATIENT
  Age: 24 Year
  Sex: Female
  Weight: 72.11 kg

DRUGS (1)
  1. NEXPLANON [Suspect]
     Indication: CONTRACEPTION
     Dosage: UNK
     Route: 059
     Dates: start: 20130310

REACTIONS (2)
  - Injection site rash [Recovering/Resolving]
  - Rash [Recovering/Resolving]
